FAERS Safety Report 11727769 (Version 1)
Quarter: 2015Q4

REPORT INFORMATION
  Report Type: Spontaneous
  Country: TH (occurrence: TH)
  Receive Date: 20151112
  Receipt Date: 20151112
  Transmission Date: 20160304
  Serious: Yes (Hospitalization)
  Sender: FDA-Public Use
  Company Number: TH-BAYER-2015-439582

PATIENT
  Sex: Female

DRUGS (1)
  1. ULTRAVIST [Suspect]
     Active Substance: IOPROMIDE
     Indication: COMPUTERISED TOMOGRAM HEAD
     Dosage: 50 ML, ONCE
     Route: 042

REACTIONS (4)
  - Rash [Unknown]
  - Fatigue [Unknown]
  - Rash pruritic [Unknown]
  - Generalised erythema [Unknown]

NARRATIVE: CASE EVENT DATE: 20151006
